FAERS Safety Report 12759128 (Version 1)
Quarter: 2016Q3

REPORT INFORMATION
  Report Type: Spontaneous
  Country: US (occurrence: US)
  Receive Date: 20160915
  Receipt Date: 20160915
  Transmission Date: 20161109
  Serious: No
  Sender: FDA-Public Use
  Company Number: None

PATIENT
  Age: 53 Year
  Sex: Male

DRUGS (1)
  1. COSENTYX [Suspect]
     Active Substance: SECUKINUMAB
     Indication: PRODUCT USED FOR UNKNOWN INDICATION
     Dosage: 300 MG Q4W SQ
     Route: 058
     Dates: start: 20160308

REACTIONS (3)
  - Dry eye [None]
  - Skin disorder [None]
  - Conjunctivitis [None]

NARRATIVE: CASE EVENT DATE: 20160824
